FAERS Safety Report 9411589 (Version 1)
Quarter: 2013Q3

REPORT INFORMATION
  Report Type: Spontaneous
  Country: US (occurrence: None)
  Receive Date: 20130718
  Receipt Date: 20130718
  Transmission Date: 20140515
  Serious: No
  Sender: FDA-Public Use
  Company Number: None

PATIENT
  Age: 75 None
  Sex: Female

DRUGS (12)
  1. BENICAR [Suspect]
     Indication: HYPERTENSION
     Route: 048
     Dates: end: 20120225
  2. AMBIEN [Suspect]
  3. SYNTHROID [Suspect]
  4. PREDNISONE [Suspect]
  5. IMODIUM [Suspect]
  6. NEXIUM [Suspect]
  7. THYROXINE [Concomitant]
  8. CARVEDILOL [Concomitant]
  9. VITAMIN D [Concomitant]
  10. VITAMIN C [Concomitant]
  11. VITAMIN E [Concomitant]
  12. CALTRATE [Concomitant]

REACTIONS (7)
  - Abdominal pain upper [None]
  - Decreased appetite [None]
  - Asthenia [None]
  - Diarrhoea [None]
  - Nausea [None]
  - Vomiting [None]
  - Weight decreased [None]
